FAERS Safety Report 21841857 (Version 1)
Quarter: 2023Q1

REPORT INFORMATION
  Report Type: Spontaneous
  Country: FR (occurrence: FR)
  Receive Date: 20230110
  Receipt Date: 20230110
  Transmission Date: 20230418
  Serious: Yes (Other)
  Sender: FDA-Public Use
  Company Number: FR-GSKCCFEMEA-Case-01642349_AE-65952

PATIENT

DRUGS (1)
  1. LAMICTAL [Suspect]
     Active Substance: LAMOTRIGINE
     Indication: Product used for unknown indication
     Dosage: 50 MG

REACTIONS (3)
  - Blindness [Unknown]
  - Partial seizures [Unknown]
  - Balance disorder [Unknown]

NARRATIVE: CASE EVENT DATE: 20230105
